FAERS Safety Report 6839253-9 (Version None)
Quarter: 2010Q3

REPORT INFORMATION
  Report Type: 
  Country: None (occurrence: None)
  Receive Date: 20100714
  Receipt Date: 20100209
  Transmission Date: 20110219
  Serious: No
  Sender: FDA-Public Use
  Company Number: US-KINGPHARMUSA00001-K201000165

PATIENT
  Age: 24 Year
  Sex: Female

DRUGS (4)
  1. BICILLIN L-A [Suspect]
     Indication: LYME DISEASE
     Dosage: 2 INJECTIONS X TWO TIMES WEEKLY
     Route: 030
     Dates: start: 20090101
  2. BACTRIM DS [Concomitant]
     Dosage: UNK
     Route: 048
  3. ZITHROMYCIN [Concomitant]
     Dosage: 250 MG, BID
  4. PLAQUENIL [Concomitant]
     Dosage: 200 MG, BID

REACTIONS (4)
  - INJECTION SITE HAEMATOMA [None]
  - INJECTION SITE PAIN [None]
  - NEURALGIA [None]
  - NODULE [None]
